FAERS Safety Report 8812363 (Version 1)
Quarter: 2012Q4

REPORT INFORMATION
  Report Type: 
  Country: US (occurrence: US)
  Receive Date: 20120927
  Receipt Date: 20120927
  Transmission Date: 20130627
  Serious: Yes (Hospitalization)
  Sender: FDA-Public Use
  Company Number: US-VERTEX PHARMACEUTICAL INC.-2012-021668

PATIENT
  Age: 18 Year
  Sex: Male

DRUGS (6)
  1. INCIVEK [Suspect]
     Indication: HEPATITIS C
     Dosage: 750 mg, tid
     Route: 048
     Dates: start: 20120408, end: 20120514
  2. INCIVEK [Suspect]
     Dosage: 750 mg, tid
     Route: 048
     Dates: start: 20120528, end: 20120621
  3. PEGINTRON                          /01543001/ [Suspect]
     Indication: HEPATITIS C
     Dosage: 120 UNK, UNK
     Route: 058
     Dates: start: 20120408, end: 20120514
  4. PEGINTRON                          /01543001/ [Suspect]
     Dosage: 120 UNK, UNK
     Route: 058
     Dates: start: 20120528, end: 20120618
  5. RIBAVIRIN [Suspect]
     Indication: HEPATITIS C
     Dosage: 600 mg, bid
     Route: 048
     Dates: start: 20120408, end: 20120514
  6. RIBAVIRIN [Suspect]
     Dosage: 600 mg, bid
     Route: 048
     Dates: start: 20120528, end: 20120621

REACTIONS (3)
  - Folliculitis [Recovered/Resolved]
  - Influenza like illness [Recovered/Resolved]
  - Drug ineffective [Unknown]
